FAERS Safety Report 19419369 (Version 1)
Quarter: 2021Q2

REPORT INFORMATION
  Report Type: Spontaneous
  Country: CO (occurrence: CO)
  Receive Date: 20210615
  Receipt Date: 20210615
  Transmission Date: 20210717
  Serious: Yes (Hospitalization)
  Sender: FDA-Public Use
  Company Number: CO-PFIZER INC-2021641638

PATIENT
  Age: 68 Year
  Sex: Female

DRUGS (1)
  1. INLYTA [Suspect]
     Active Substance: AXITINIB
     Dosage: 5 MG
     Route: 048
     Dates: start: 202104

REACTIONS (3)
  - Dizziness [Unknown]
  - Back pain [Unknown]
  - Somnolence [Unknown]

NARRATIVE: CASE EVENT DATE: 20210602
